FAERS Safety Report 9056937 (Version 1)
Quarter: 2013Q1

REPORT INFORMATION
  Report Type: Report from Study
  Country: US (occurrence: US)
  Receive Date: 20130131
  Receipt Date: 20130131
  Transmission Date: 20140127
  Serious: No
  Sender: FDA-Public Use
  Company Number: US-ABBOTT-12P-163-0981195-00

PATIENT
  Age: 20 Year
  Sex: Female

DRUGS (4)
  1. HUMIRA [Suspect]
     Indication: BEHCET^S SYNDROME
     Dates: start: 201202
  2. TRAMADOL [Concomitant]
     Indication: PAIN
     Route: 048
  3. NAPROXEN [Concomitant]
     Indication: HEADACHE
     Route: 048
  4. MAXALT [Concomitant]
     Indication: HEADACHE
     Dosage: DAILY
     Route: 048

REACTIONS (12)
  - Mouth ulceration [Recovering/Resolving]
  - Injection site pain [Not Recovered/Not Resolved]
  - Injection site pain [Not Recovered/Not Resolved]
  - Injection site bruising [Not Recovered/Not Resolved]
  - Behcet^s syndrome [Not Recovered/Not Resolved]
  - Nodule [Recovering/Resolving]
  - Sinusitis [Not Recovered/Not Resolved]
  - Nasopharyngitis [Not Recovered/Not Resolved]
  - Nasal congestion [Not Recovered/Not Resolved]
  - Increased upper airway secretion [Not Recovered/Not Resolved]
  - Wrong technique in drug usage process [Recovering/Resolving]
  - Injection site mass [Recovering/Resolving]
